FAERS Safety Report 7348336-9 (Version None)
Quarter: 2011Q1

REPORT INFORMATION
  Report Type: 
  Country: None (occurrence: None)
  Receive Date: 20110311
  Receipt Date: 20110307
  Transmission Date: 20110831
  Serious: Yes (Death)
  Sender: FDA-Public Use
  Company Number: SE-GENENTECH-314957

PATIENT

DRUGS (4)
  1. ACTIVASE [Suspect]
     Indication: EMBOLISM ARTERIAL
  2. HEPARIN [Concomitant]
     Indication: ARTERIAL THROMBOSIS
  3. HEPARIN [Concomitant]
     Indication: EMBOLISM ARTERIAL
  4. ACTIVASE [Suspect]
     Indication: ARTERIAL THROMBOSIS

REACTIONS (1)
  - PERIPHERAL ISCHAEMIA [None]
